FAERS Safety Report 24573054 (Version 1)
Quarter: 2024Q4

REPORT INFORMATION
  Report Type: Spontaneous
  Country: TR (occurrence: TR)
  Receive Date: 20241101
  Receipt Date: 20241101
  Transmission Date: 20250114
  Serious: Yes (Death, Life-Threatening, Hospitalization, Other)
  Sender: PFIZER
  Company Number: TR-PFIZER INC-202400290701

PATIENT
  Age: 78 Year
  Sex: Male

DRUGS (9)
  1. RITUXIMAB [Suspect]
     Active Substance: RITUXIMAB
     Indication: Kaposi^s sarcoma
     Dosage: INFUSION
  2. RITUXIMAB [Suspect]
     Active Substance: RITUXIMAB
     Indication: Castleman^s disease
  3. METHYLPREDNISOLONE [Concomitant]
     Active Substance: METHYLPREDNISOLONE
     Indication: Kaposi^s sarcoma
     Dosage: 48 MG, DAILY
  4. METHYLPREDNISOLONE [Concomitant]
     Active Substance: METHYLPREDNISOLONE
     Indication: Castleman^s disease
  5. GANCICLOVIR [Concomitant]
     Active Substance: GANCICLOVIR
     Indication: Kaposi^s sarcoma
     Dosage: 5 MG/KG, DAILY
  6. GANCICLOVIR [Concomitant]
     Active Substance: GANCICLOVIR
     Indication: Castleman^s disease
  7. MEROPENEM [Concomitant]
     Active Substance: MEROPENEM
     Indication: Febrile neutropenia
     Dosage: 1000 MG, 3X/DAY
  8. TIGECYCLINE [Concomitant]
     Active Substance: TIGECYCLINE
     Indication: Soft tissue infection
     Dosage: UNK
  9. PIPERACILLIN AND TAZOBACTAM [Concomitant]
     Active Substance: PIPERACILLIN SODIUM\TAZOBACTAM SODIUM
     Indication: Streptococcal bacteraemia
     Dosage: UNK

REACTIONS (2)
  - Cytokine release syndrome [Fatal]
  - Distributive shock [Fatal]
